FAERS Safety Report 20750460 (Version 1)
Quarter: 2022Q2

REPORT INFORMATION
  Report Type: Spontaneous
  Country: US (occurrence: US)
  Receive Date: 20220426
  Receipt Date: 20220426
  Transmission Date: 20220721
  Serious: No
  Sender: FDA-Public Use
  Company Number: US-PFIZER INC-202101192377

PATIENT
  Age: 59 Year
  Sex: Male
  Weight: 125.64 kg

DRUGS (2)
  1. CHANTIX [Suspect]
     Active Substance: VARENICLINE TARTRATE
     Indication: Smoking cessation therapy
     Dosage: 0.5 MG
  2. CHANTIX [Suspect]
     Active Substance: VARENICLINE TARTRATE
     Dosage: 1 MG, (BREAKS THE 1MG IN HALF)

REACTIONS (5)
  - Insomnia [Unknown]
  - Abnormal dreams [Unknown]
  - Weight fluctuation [Unknown]
  - Body height decreased [Unknown]
  - Intentional product misuse [Unknown]
